FAERS Safety Report 4444247-7 (Version None)
Quarter: 2004Q3

REPORT INFORMATION
  Report Type: 
  Country: None (occurrence: None)
  Receive Date: 20040802
  Receipt Date: 20040510
  Transmission Date: 20050211
  Serious: No
  Sender: FDA-Public Use
  Company Number: 2004-117823-NL

PATIENT
  Age: 27 Year
  Sex: Female

DRUGS (2)
  1. NUVARING [Suspect]
     Indication: CONTRACEPTION
     Dosage: DF DAILY VAGINAL
     Route: 067
     Dates: start: 20030601
  2. VAGISIL [Concomitant]

REACTIONS (3)
  - COMPLICATION OF DEVICE REMOVAL [None]
  - DEVICE FAILURE [None]
  - VULVOVAGINAL DISCOMFORT [None]
